FAERS Safety Report 6796180-3 (Version None)
Quarter: 2010Q2

REPORT INFORMATION
  Report Type: 
  Country: None (occurrence: None)
  Receive Date: 20100625
  Receipt Date: 20100614
  Transmission Date: 20101027
  Serious: Yes (Hospitalization, Other)
  Sender: FDA-Public Use
  Company Number: LB-ELI_LILLY_AND_COMPANY-LB201004006969

PATIENT
  Age: 65 Year
  Sex: Female

DRUGS (5)
  1. GEMCITABINE HYDROCHLORIDE [Suspect]
     Indication: HODGKIN'S DISEASE
     Dosage: 800 MG/M2, OTHER (DAY ONE AND DAY EIGHT)
     Route: 042
  2. GEMCITABINE HYDROCHLORIDE [Suspect]
     Dosage: 800 MG/M2, OTHER (DAY ONE AND DAY EIGHT)
     Route: 042
  3. NAVELBINE [Concomitant]
     Indication: HODGKIN'S DISEASE
     Dosage: 20 MG/M2, OTHER (DAY 1 AND DAY 8)
     Route: 065
  4. CAELYX [Concomitant]
     Indication: HODGKIN'S DISEASE
     Dosage: 10 MG/M2, DAILY (1/D)
     Route: 065
  5. LEXOTANIL [Concomitant]
     Dosage: UNK, UNKNOWN
     Route: 065

REACTIONS (2)
  - OFF LABEL USE [None]
  - PULMONARY TOXICITY [None]
